FAERS Safety Report 8822779 (Version 2)
Quarter: 2012Q4

REPORT INFORMATION
  Report Type: Report from Study
  Country: DE (occurrence: DE)
  Receive Date: 20121003
  Receipt Date: 20121129
  Transmission Date: 20130627
  Serious: Yes (Life-Threatening, Hospitalization)
  Sender: FDA-Public Use
  Company Number: DE-ROCHE-1024763

PATIENT
  Age: 77 Year
  Sex: Female
  Weight: 64.2 kg

DRUGS (1)
  1. METHOXY POLYETHYLENE GLYCOL-EPOETIN BETA [Suspect]
     Indication: NEPHROGENIC ANAEMIA
     Route: 042

REACTIONS (3)
  - Back pain [Recovered/Resolved]
  - Thrombophlebitis superficial [Recovered/Resolved]
  - Erythema [Recovered/Resolved]
